FAERS Safety Report 6380539-2 (Version None)
Quarter: 2009Q3

REPORT INFORMATION
  Report Type: 
  Country: None (occurrence: None)
  Receive Date: 20090924
  Receipt Date: 20090914
  Transmission Date: 20100115
  Serious: Yes (Hospitalization, Disabling, Other)
  Sender: FDA-Public Use
  Company Number: 2009AL001761

PATIENT
  Age: 30 Year
  Sex: Male

DRUGS (36)
  1. DIGOXIN [Suspect]
     Indication: ATRIAL FIBRILLATION
     Dosage: 0.25MG, DAILY, PO
     Route: 048
  2. DIGOXIN [Suspect]
     Indication: ATRIAL FIBRILLATION
     Dosage: 0.125MG, PO
     Route: 048
  3. AMIODARONE HCL [Concomitant]
  4. BUMEX [Concomitant]
  5. COREG [Concomitant]
  6. COZAAR [Concomitant]
  7. POTASSIUM CHLORIDE [Concomitant]
  8. ALDACTONE [Concomitant]
  9. ZAROXOLYN [Concomitant]
  10. WARFARIN SODIUM [Concomitant]
  11. BENZOYL [Concomitant]
  12. PEROXIDE [Concomitant]
  13. SPIRONOLACTONE [Concomitant]
  14. BUMETANIDE [Concomitant]
  15. AMOXICILLIN [Concomitant]
  16. AZITHROMYCIN [Concomitant]
  17. FLOVENT [Concomitant]
  18. CEPHALEXIN [Concomitant]
  19. ACETAMINOPHEN [Concomitant]
  20. FUROSEMIDE [Concomitant]
  21. TOBRAMYCIN [Concomitant]
  22. DOXYCLINE [Concomitant]
  23. KLOR-CON [Concomitant]
  24. LEVAQUIN [Concomitant]
  25. PROAIR HFA [Concomitant]
  26. HYDROCODONE [Concomitant]
  27. TRAMADOL [Concomitant]
  28. AMRIX [Concomitant]
  29. KETOCONAZOLE [Concomitant]
  30. ONDANSETRON HCL [Concomitant]
  31. BETAMETHASONE [Concomitant]
  32. ALLOPURINOL [Concomitant]
  33. METHYLPREDNISOLONE [Concomitant]
  34. POTASSIUM CHLORIDE [Concomitant]
  35. CELEBREX [Concomitant]
  36. . [Concomitant]

REACTIONS (23)
  - ABDOMINAL DISTENSION [None]
  - ANHEDONIA [None]
  - ANXIETY [None]
  - ARRHYTHMIA [None]
  - CARDIOACTIVE DRUG LEVEL INCREASED [None]
  - CARDIOMEGALY [None]
  - CHEST X-RAY ABNORMAL [None]
  - CHOLELITHIASIS [None]
  - COUGH [None]
  - DYSPNOEA [None]
  - ECONOMIC PROBLEM [None]
  - FATIGUE [None]
  - FEELING ABNORMAL [None]
  - HAEMATURIA [None]
  - ILL-DEFINED DISORDER [None]
  - IMPAIRED WORK ABILITY [None]
  - INJURY [None]
  - LOCALISED INTRAABDOMINAL FLUID COLLECTION [None]
  - PAIN IN EXTREMITY [None]
  - PLEURAL FIBROSIS [None]
  - RALES [None]
  - SPLENOMEGALY [None]
  - WEIGHT INCREASED [None]
